FAERS Safety Report 22340479 (Version 1)
Quarter: 2023Q2

REPORT INFORMATION
  Report Type: Report from Study
  Country: US (occurrence: US)
  Receive Date: 20230518
  Receipt Date: 20230518
  Transmission Date: 20230721
  Serious: Yes (Hospitalization)
  Sender: FDA-Public Use
  Company Number: US-MYLANLABS-2023M1051243

PATIENT
  Sex: Male

DRUGS (1)
  1. YUPELRI [Suspect]
     Active Substance: REVEFENACIN
     Indication: Product used for unknown indication
     Dosage: UNK UNK, TID (175 MCG /3ML SOLUTION)
     Route: 065

REACTIONS (1)
  - Hospitalisation [Unknown]
